FAERS Safety Report 9343045 (Version 7)
Quarter: 2016Q2

REPORT INFORMATION
  Report Type: Spontaneous
  Country: US (occurrence: US)
  Receive Date: 20130611
  Receipt Date: 20160401
  Transmission Date: 20160815
  Serious: Yes (Other)
  Sender: FDA-Public Use
  Company Number: US-009507513-1306USA004334

PATIENT
  Sex: Male
  Weight: 80.73 kg

DRUGS (1)
  1. PROPECIA [Suspect]
     Active Substance: FINASTERIDE
     Indication: ANDROGENETIC ALOPECIA
     Dosage: 1 MG, UNK
     Route: 048
     Dates: start: 20060627, end: 20120910

REACTIONS (10)
  - Benign prostatic hyperplasia [Unknown]
  - Prostatitis [Unknown]
  - Prostatic dysplasia [Unknown]
  - Tumour invasion [Unknown]
  - Prostate cancer [Unknown]
  - Lymphadenectomy [Unknown]
  - Prostate cancer [Unknown]
  - Eye disorder [Unknown]
  - Prostatic mass [Unknown]
  - Erectile dysfunction [Unknown]

NARRATIVE: CASE EVENT DATE: 201003
